FAERS Safety Report 9161248 (Version 1)
Quarter: 2013Q1

REPORT INFORMATION
  Report Type: Spontaneous
  Country: US (occurrence: US)
  Receive Date: 20130313
  Receipt Date: 20130313
  Transmission Date: 20140127
  Serious: No
  Sender: FDA-Public Use
  Company Number: US-009507513-2011SP056499

PATIENT
  Sex: Male
  Weight: 105.69 kg

DRUGS (4)
  1. BOCEPREVIR [Suspect]
     Indication: PRODUCT USED FOR UNKNOWN INDICATION
     Dosage: 4 DF, 3 IN 1 D, FREQUENCY: 800 MG (4 CAPS) THREE TIMES A DAY
     Route: 048
  2. RIBAPAK [Suspect]
     Indication: PRODUCT USED FOR UNKNOWN INDICATION
     Dosage: 1200/DAY
  3. PEGASYS [Suspect]
     Indication: PRODUCT USED FOR UNKNOWN INDICATION
     Dosage: 120 MICROGRAM, UNK
  4. ATENOLOL [Concomitant]
     Dosage: 25 MG, UNK
     Route: 065

REACTIONS (8)
  - Tenderness [Not Recovered/Not Resolved]
  - Influenza like illness [Unknown]
  - Decreased appetite [Unknown]
  - Dysgeusia [Unknown]
  - Drug dose omission [Unknown]
  - Rash [Recovered/Resolved]
  - Fatigue [Unknown]
  - Dizziness [Unknown]
